FAERS Safety Report 10903464 (Version 2)
Quarter: 2015Q2

REPORT INFORMATION
  Report Type: Spontaneous
  Country: GB (occurrence: None)
  Receive Date: 20150304
  Receipt Date: 20150416
  Transmission Date: 20150821
  Serious: Yes (Hospitalization, Other)
  Sender: FDA-Public Use
  Company Number: 2015-10767

PATIENT
  Age: 91 Year
  Sex: Female
  Weight: 81.2 kg

DRUGS (13)
  1. EYLEA [Suspect]
     Active Substance: AFLIBERCEPT
     Indication: MACULAR DEGENERATION
     Route: 031
  2. ALLOPURINOL. [Concomitant]
     Active Substance: ALLOPURINOL
  3. LISINOPRIL. [Concomitant]
     Active Substance: LISINOPRIL
  4. RANITIDINE [Concomitant]
     Active Substance: RANITIDINE\RANITIDINE HYDROCHLORIDE
  5. TOLTERODINE [Concomitant]
     Active Substance: TOLTERODINE
  6. LEVOTHYROXINE [Concomitant]
     Active Substance: LEVOTHYROXINE
  7. PARACETAMOL [Concomitant]
     Active Substance: ACETAMINOPHEN
  8. DILTIAZEM [Concomitant]
     Active Substance: DILTIAZEM
  9. TRAMADOL [Concomitant]
     Active Substance: TRAMADOL
  10. BISOPROLOL [Concomitant]
     Active Substance: BISOPROLOL
  11. ALFACALCIDOL [Concomitant]
     Active Substance: ALFACALCIDOL
  12. SIMVASTATIN. [Concomitant]
     Active Substance: SIMVASTATIN
  13. FUROSEMIDE. [Concomitant]
     Active Substance: FUROSEMIDE

REACTIONS (2)
  - Rectal haemorrhage [None]
  - Diverticulitis [None]
